FAERS Safety Report 4498864-9 (Version None)
Quarter: 2004Q4

REPORT INFORMATION
  Report Type: 
  Country: None (occurrence: None)
  Receive Date: 20041108
  Receipt Date: 20041028
  Transmission Date: 20050328
  Serious: Yes (Life-Threatening, Hospitalization)
  Sender: FDA-Public Use
  Company Number: F01200403430

PATIENT
  Age: 88 Year
  Sex: Male

DRUGS (2)
  1. LEUPROLIDE ACETATE [Suspect]
     Indication: PROSTATE CANCER
     Dosage: 22.5 MG Q3M
     Route: 058
     Dates: start: 20040826
  2. FLUTAMIDE [Suspect]
     Dosage: 750 MG
     Dates: start: 20040820, end: 20040828

REACTIONS (1)
  - CEREBROVASCULAR ACCIDENT [None]
